FAERS Safety Report 24553798 (Version 1)
Quarter: 2024Q4

REPORT INFORMATION
  Report Type: Report from Study
  Country: US (occurrence: US)
  Receive Date: 20241028
  Receipt Date: 20241028
  Transmission Date: 20250115
  Serious: No
  Sender: ROCHE
  Company Number: US-ROCHE-10000054495

PATIENT
  Age: 15 Year
  Sex: Male
  Weight: 48.4 kg

DRUGS (1)
  1. NUTROPIN [Suspect]
     Active Substance: SOMATROPIN
     Indication: Short stature
     Dosage: MORE DOSAGE INFORMATION IS 10 MG AUTO PEN
     Route: 058
     Dates: end: 20250327

REACTIONS (4)
  - Chronic cutaneous lupus erythematosus [Unknown]
  - Vision blurred [Unknown]
  - Skin hypopigmentation [Unknown]
  - Fall [Unknown]
